FAERS Safety Report 7234445-1 (Version None)
Quarter: 2011Q1

REPORT INFORMATION
  Report Type: 
  Country: None (occurrence: None)
  Receive Date: 20110119
  Receipt Date: 20110110
  Transmission Date: 20110831
  Serious: Yes (Death, Hospitalization)
  Sender: FDA-Public Use
  Company Number: SA-AMGEN-SAUSP2011002182

PATIENT

DRUGS (7)
  1. PANITUMUMAB [Suspect]
     Indication: COLON CANCER
     Dosage: 3.5 MG/KG, Q2WK
     Route: 042
  2. VALSARTAN [Concomitant]
  3. GLICLAZIDE [Concomitant]
  4. PANITUMUMAB [Suspect]
     Dosage: 1.75 MG/KG, ONE TIME DOSE
     Route: 042
  5. ATORVASTATIN CALCIUM [Concomitant]
  6. SPIRONOLACTONE [Concomitant]
  7. IRINOTECAN [Suspect]
     Dosage: 125 MG/M2, Q2WK
     Route: 042

REACTIONS (1)
  - CARDIAC ARREST [None]
